FAERS Safety Report 9378560 (Version 1)
Quarter: 2013Q3

REPORT INFORMATION
  Report Type: Report from Study
  Country: BR (occurrence: BR)
  Receive Date: 20130702
  Receipt Date: 20130702
  Transmission Date: 20140515
  Serious: Yes (Hospitalization, Other)
  Sender: FDA-Public Use
  Company Number: BR-ROCHE-662920

PATIENT
  Age: 75 Year
  Sex: Female
  Weight: 76 kg

DRUGS (10)
  1. RITUXIMAB [Suspect]
     Indication: RHEUMATOID ARTHRITIS
     Dosage: DOSE: 100MG/10 ML;  FREQUENCY: ONCE/FORTNIGHTLY
     Route: 042
     Dates: start: 200810, end: 200810
  2. RITUXIMAB [Suspect]
     Dosage: DOSE: 100MG/10 ML
     Route: 042
     Dates: start: 200905, end: 200905
  3. RITUXIMAB [Suspect]
     Route: 042
  4. CALCIUM [Concomitant]
  5. FOLIC ACID [Concomitant]
  6. LIPITOR [Concomitant]
     Route: 065
  7. ACETYLSALICYLIC ACID [Concomitant]
     Route: 065
  8. ALENDRONATE SODIUM [Concomitant]
     Indication: OSTEOPOROSIS
     Route: 065
  9. OMEPRAZOLE [Concomitant]
     Indication: PROPHYLAXIS AGAINST GASTROINTESTINAL ULCER
  10. GLUCOREUMIN [Concomitant]
     Route: 065
     Dates: start: 200908, end: 200908

REACTIONS (4)
  - Arthritis [Unknown]
  - Drug ineffective [Unknown]
  - Malaise [Not Recovered/Not Resolved]
  - Eye operation [Unknown]
